FAERS Safety Report 17415963 (Version 3)
Quarter: 2020Q1

REPORT INFORMATION
  Report Type: Report from Study
  Country: US (occurrence: US)
  Receive Date: 20200213
  Receipt Date: 20200312
  Transmission Date: 20200409
  Serious: Yes (Death, Other)
  Sender: FDA-Public Use
  Company Number: US-GILEAD-2020-0450926

PATIENT
  Age: 37 Year
  Sex: Female

DRUGS (1)
  1. AMBRISENTAN [Suspect]
     Active Substance: AMBRISENTAN
     Indication: PULMONARY ARTERIAL HYPERTENSION
     Dosage: 10 MG, QD
     Route: 065
     Dates: start: 20161015

REACTIONS (4)
  - Death [Fatal]
  - Treatment noncompliance [Unknown]
  - Substance use [Not Recovered/Not Resolved]
  - Pulmonary hypertension [Unknown]
